FAERS Safety Report 6218494-8 (Version None)
Quarter: 2009Q2

REPORT INFORMATION
  Report Type: 
  Country: None (occurrence: None)
  Receive Date: 20090608
  Receipt Date: 20090602
  Transmission Date: 20091009
  Serious: Yes (Hospitalization, Congenital Anomaly)
  Sender: FDA-Public Use
  Company Number: D0061811A

PATIENT
  Sex: Female

DRUGS (1)
  1. LAMICTAL [Suspect]
     Dosage: 250MG PER DAY

REACTIONS (4)
  - ATRIAL SEPTAL DEFECT [None]
  - CLOACAL EXSTROPHY [None]
  - CONGENITAL MUSCULOSKELETAL ANOMALY [None]
  - DRUG EXPOSURE DURING PREGNANCY [None]
